FAERS Safety Report 20068120 (Version 1)
Quarter: 2021Q4

REPORT INFORMATION
  Report Type: Spontaneous
  Country: IE (occurrence: IE)
  Receive Date: 20211115
  Receipt Date: 20211115
  Transmission Date: 20220303
  Serious: Yes (Other)
  Sender: FDA-Public Use
  Company Number: IE-GSKCCFEMEA-Case-01349422_AE-51568

PATIENT
  Sex: Female

DRUGS (1)
  1. ZEJULA [Suspect]
     Active Substance: NIRAPARIB
     Indication: Product used for unknown indication
     Dosage: 200 MG, QD
     Dates: start: 20210707, end: 20211017

REACTIONS (3)
  - Gastritis haemorrhagic [Unknown]
  - Haemoglobin abnormal [Unknown]
  - Transfusion [Unknown]
